FAERS Safety Report 9580249 (Version 1)
Quarter: 2013Q3

REPORT INFORMATION
  Report Type: Spontaneous
  Country: US (occurrence: None)
  Receive Date: 20130916
  Receipt Date: 20130916
  Transmission Date: 20140515
  Serious: Yes (Other)
  Sender: FDA-Public Use
  Company Number: JPI-P-029675

PATIENT
  Age: 36 Year
  Sex: Female
  Weight: 73.48 kg

DRUGS (2)
  1. XYREM [Suspect]
     Indication: NARCOLEPSY
     Dosage: 4.5 GM  (2.25 GM, 2 IN 1 D), ORAL
     Route: 048
     Dates: start: 20120304
  2. XYREM [Suspect]
     Indication: SOMNOLENCE
     Dosage: 4.5 GM  (2.25 GM, 2 IN 1 D), ORAL
     Route: 048
     Dates: start: 20120304

REACTIONS (6)
  - Weight decreased [None]
  - Decreased appetite [None]
  - Abnormal dreams [None]
  - Somnambulism [None]
  - Dizziness [None]
  - Initial insomnia [None]
